FAERS Safety Report 7063425-4 (Version None)
Quarter: 2010Q4

REPORT INFORMATION
  Report Type: 
  Country: None (occurrence: None)
  Receive Date: 20101026
  Receipt Date: 20100212
  Transmission Date: 20110411
  Serious: No
  Sender: FDA-Public Use
  Company Number: US-ABBOTT-10P-163-0626612-00

PATIENT
  Sex: Female
  Weight: 119.86 kg

DRUGS (2)
  1. LUPRON DEPOT [Suspect]
     Indication: ENDOMETRIOSIS
     Dosage: UNSURE OF STRENGTH
     Route: 050
     Dates: start: 20091201
  2. CEFUROXIME [Suspect]
     Indication: SINUSITIS
     Route: 048
     Dates: start: 20100202, end: 20100210

REACTIONS (5)
  - HYPERTENSION [None]
  - PANIC ATTACK [None]
  - PRURITUS [None]
  - SINUSITIS [None]
  - URTICARIA [None]
